FAERS Safety Report 6447591-7 (Version None)
Quarter: 2009Q4

REPORT INFORMATION
  Report Type: 
  Country: None (occurrence: None)
  Receive Date: 20091119
  Receipt Date: 20090204
  Transmission Date: 20100525
  Serious: Yes (Hospitalization, Other)
  Sender: FDA-Public Use
  Company Number: US-AMGEN-QUU290249

PATIENT
  Sex: Female
  Weight: 62.7 kg

DRUGS (1)
  1. ENBREL [Suspect]
     Indication: PSORIASIS
     Route: 058
     Dates: start: 20080529

REACTIONS (3)
  - FOLLICULITIS [None]
  - PSORIASIS [None]
  - STAPHYLOCOCCAL INFECTION [None]
